FAERS Safety Report 10203057 (Version 2)
Quarter: 2014Q2

REPORT INFORMATION
  Report Type: Spontaneous
  Country: GB (occurrence: GB)
  Receive Date: 20140529
  Receipt Date: 20140613
  Transmission Date: 20141212
  Serious: Yes (Other)
  Sender: FDA-Public Use
  Company Number: GB-JNJFOC-20140511785

PATIENT
  Age: 69 Year
  Sex: Male
  Weight: 68 kg

DRUGS (2)
  1. ZYRTEC [Suspect]
     Route: 048
  2. ZYRTEC [Suspect]
     Indication: SEASONAL ALLERGY
     Dosage: 10MG, ONCE DAILY; TAKEN FOR 50 YEARS
     Route: 048

REACTIONS (4)
  - Increased tendency to bruise [Recovering/Resolving]
  - Urinary tract infection [Recovering/Resolving]
  - Dyskinesia [Recovering/Resolving]
  - Dysuria [Recovering/Resolving]
